FAERS Safety Report 7571092-6 (Version None)
Quarter: 2011Q2

REPORT INFORMATION
  Report Type: 
  Country: None (occurrence: None)
  Receive Date: 20110624
  Receipt Date: 20110622
  Transmission Date: 20111010
  Serious: Yes (Hospitalization, Other)
  Sender: FDA-Public Use
  Company Number: BR-PFIZER INC-2011133351

PATIENT
  Age: 69 Year
  Sex: Female
  Weight: 69 kg

DRUGS (6)
  1. LEVOTHYROXINE SODIUM [Concomitant]
     Indication: HYPOTHYROIDISM
     Dosage: UNK
     Dates: start: 19910101
  2. OLMESARTAN MEDOXOMIL [Concomitant]
     Indication: BLOOD PRESSURE INCREASED
     Dosage: UNK
     Dates: start: 20080101
  3. INDAPAMIDE [Concomitant]
     Indication: BLOOD PRESSURE INCREASED
     Dosage: UNK
     Dates: start: 20010101
  4. LIPITOR [Suspect]
     Indication: BLOOD CHOLESTEROL INCREASED
     Dosage: 10 MG (HALF TABLET OF 20MG), ONCE DAILY
     Route: 048
     Dates: start: 20090101, end: 20110420
  5. ATENOLOL [Concomitant]
     Indication: BLOOD PRESSURE INCREASED
     Dosage: UNK
     Dates: start: 19960101
  6. TERBINAFINE HCL [Suspect]
     Indication: FUNGAL INFECTION
     Dosage: UNK
     Dates: start: 20110201, end: 20110301

REACTIONS (7)
  - ALANINE AMINOTRANSFERASE INCREASED [None]
  - MOVEMENT DISORDER [None]
  - POLYMYOSITIS [None]
  - ASPARTATE AMINOTRANSFERASE INCREASED [None]
  - MYALGIA [None]
  - WALKING AID USER [None]
  - MYOSITIS [None]
